FAERS Safety Report 5010947-3 (Version None)
Quarter: 2006Q2

REPORT INFORMATION
  Report Type: 
  Country: None (occurrence: None)
  Receive Date: 20060525
  Receipt Date: 20060516
  Transmission Date: 20061013
  Serious: Yes (Disabling)
  Sender: FDA-Public Use
  Company Number: GB-BRISTOL-MYERS SQUIBB COMPANY-13388186

PATIENT
  Age: 37 Year
  Sex: Male

DRUGS (1)
  1. ERBITUX [Suspect]
     Indication: DRUG USE FOR UNKNOWN INDICATION
     Route: 042

REACTIONS (3)
  - ABASIA [None]
  - MUSCLE SPASMS [None]
  - MUSCULAR WEAKNESS [None]
